FAERS Safety Report 25411316 (Version 1)
Quarter: 2025Q2

REPORT INFORMATION
  Report Type: Spontaneous
  Country: CN (occurrence: CN)
  Receive Date: 20250609
  Receipt Date: 20250609
  Transmission Date: 20250716
  Serious: Yes (Hospitalization)
  Sender: JUBILANT
  Company Number: CN-JUBILANT CADISTA PHARMACEUTICALS-2025JUB00072

PATIENT
  Age: 12 Year
  Sex: Male
  Weight: 62 kg

DRUGS (1)
  1. CARBAMAZEPINE [Suspect]
     Active Substance: CARBAMAZEPINE
     Indication: Depression
     Route: 048
     Dates: start: 2023

REACTIONS (2)
  - Osteonecrosis [Not Recovered/Not Resolved]
  - Peripheral nerve injury [Not Recovered/Not Resolved]

NARRATIVE: CASE EVENT DATE: 20240101
